FAERS Safety Report 7134181-6 (Version None)
Quarter: 2010Q4

REPORT INFORMATION
  Report Type: 
  Country: None (occurrence: None)
  Receive Date: 20101117
  Receipt Date: 20101104
  Transmission Date: 20110411
  Serious: Yes (Hospitalization, Other)
  Sender: FDA-Public Use
  Company Number: 021283

PATIENT
  Sex: Male
  Weight: 80 kg

DRUGS (6)
  1. KEPPRA [Suspect]
     Indication: CONVULSION
     Dosage: 1000 MG 5X/DAY ORAL, 3000 MG, 2 G AM AND 1 G AT NIGHT ORAL
     Route: 048
     Dates: end: 20101028
  2. KEPPRA [Suspect]
     Indication: OFF LABEL USE
     Dosage: 1000 MG 5X/DAY ORAL, 3000 MG, 2 G AM AND 1 G AT NIGHT ORAL
     Route: 048
     Dates: end: 20101028
  3. KEPPRA [Suspect]
     Indication: CONVULSION
     Dosage: 1000 MG 5X/DAY ORAL, 3000 MG, 2 G AM AND 1 G AT NIGHT ORAL
     Route: 048
     Dates: start: 20100101
  4. KEPPRA [Suspect]
     Indication: OFF LABEL USE
     Dosage: 1000 MG 5X/DAY ORAL, 3000 MG, 2 G AM AND 1 G AT NIGHT ORAL
     Route: 048
     Dates: start: 20100101
  5. VALPROATE SODIUM [Concomitant]
  6. RISPERIDONE [Concomitant]

REACTIONS (3)
  - ANTICONVULSANT DRUG LEVEL ABOVE THERAPEUTIC [None]
  - COMPLEX PARTIAL SEIZURES [None]
  - GRAND MAL CONVULSION [None]
